FAERS Safety Report 20013391 (Version 3)
Quarter: 2022Q2

REPORT INFORMATION
  Report Type: Report from Study
  Country: IE (occurrence: IE)
  Receive Date: 20211029
  Receipt Date: 20220427
  Transmission Date: 20220721
  Serious: Yes (Hospitalization, Other)
  Sender: FDA-Public Use
  Company Number: IE-MYLANLABS-2021M1076072

PATIENT
  Sex: Female

DRUGS (2)
  1. GLATIRAMER ACETATE [Suspect]
     Active Substance: GLATIRAMER ACETATE
     Indication: Multiple sclerosis
     Dosage: 40 MILLIGRAM, 3XW
     Route: 058
     Dates: start: 20210723
  2. GLATIRAMER ACETATE [Suspect]
     Active Substance: GLATIRAMER ACETATE
     Dosage: RECOMMENCED 4 WEEKS AGO
     Dates: start: 2022

REACTIONS (7)
  - Ovarian cyst [Recovering/Resolving]
  - Maternal exposure during pregnancy [Recovered/Resolved]
  - Injection site reaction [Not Recovered/Not Resolved]
  - Injection site extravasation [Unknown]
  - Maternal exposure during breast feeding [Not Recovered/Not Resolved]
  - Device issue [Unknown]
  - Incorrect dose administered [Unknown]

NARRATIVE: CASE EVENT DATE: 20211001
